FAERS Safety Report 20210377 (Version 2)
Quarter: 2022Q1

REPORT INFORMATION
  Report Type: Report from Study
  Country: US (occurrence: US)
  Receive Date: 20211221
  Receipt Date: 20220128
  Transmission Date: 20220424
  Serious: Yes (Death, Hospitalization, Disabling, Other)
  Sender: FDA-Public Use
  Company Number: US-SA-2018SA273457

PATIENT
  Age: 43 Year
  Sex: Female

DRUGS (2)
  1. ALEMTUZUMAB [Suspect]
     Active Substance: ALEMTUZUMAB
     Indication: Multiple sclerosis
     Dosage: 12 MG, QD
     Route: 041
     Dates: start: 20180709, end: 20180713
  2. BACLOFEN [Concomitant]
     Active Substance: BACLOFEN
     Dosage: 30 MG, QD
     Route: 048

REACTIONS (12)
  - Death [Fatal]
  - Movement disorder [Not Recovered/Not Resolved]
  - Urinary tract infection [Recovered/Resolved]
  - Catheter site infection [Recovered/Resolved]
  - Confusional state [Not Recovered/Not Resolved]
  - Muscle rigidity [Not Recovered/Not Resolved]
  - Muscle spasticity [Not Recovered/Not Resolved]
  - Asthenia [Not Recovered/Not Resolved]
  - Urinary incontinence [Not Recovered/Not Resolved]
  - Polymenorrhoea [Not Recovered/Not Resolved]
  - White blood cell count decreased [Unknown]
  - Drug monitoring procedure not performed [Unknown]

NARRATIVE: CASE EVENT DATE: 20180101
